FAERS Safety Report 5080819-7 (Version None)
Quarter: 2006Q3

REPORT INFORMATION
  Report Type: 
  Country: None (occurrence: None)
  Receive Date: 20060809
  Receipt Date: 20060724
  Transmission Date: 20061208
  Serious: Yes (Life-Threatening, Hospitalization, Other)
  Sender: FDA-Public Use
  Company Number: 2006AL001935

PATIENT
  Age: 64 Year
  Sex: Male

DRUGS (8)
  1. SPIRONOLACTONE [Suspect]
     Dosage: 12.5 MG; QD; PO
     Route: 048
  2. LISINOPRIL [Suspect]
     Indication: NEPHROTIC SYNDROME
     Dosage: 10 MG; QD; PO
     Route: 048
  3. CLOBETASOL PROPIONATE [Suspect]
  4. FUROSEMIDE [Concomitant]
  5. AMILORIDE [Concomitant]
  6. ALLOPURINOL [Concomitant]
  7. CETIRIZINE [Concomitant]
  8. ALBUTEROL SPIROS [Concomitant]

REACTIONS (6)
  - BLOOD POTASSIUM INCREASED [None]
  - DEHYDRATION [None]
  - DIARRHOEA [None]
  - HYPOTENSION [None]
  - RENAL FAILURE ACUTE [None]
  - VOMITING [None]
